FAERS Safety Report 4746754-6 (Version None)
Quarter: 2005Q3

REPORT INFORMATION
  Report Type: 
  Country: None (occurrence: None)
  Receive Date: 20050815
  Receipt Date: 20050801
  Transmission Date: 20060218
  Serious: Yes (Other)
  Sender: FDA-Public Use
  Company Number: GBS050818074

PATIENT
  Age: 15 Year
  Sex: Female
  Weight: 55 kg

DRUGS (3)
  1. DULOXETINE HYDROCHLORIDE [Suspect]
     Indication: HYPERTONIC BLADDER
     Dosage: 40 MG
     Dates: start: 20050414, end: 20050414
  2. TETRACYCLINE [Concomitant]
  3. TOLTERODINE TARTRATE [Concomitant]

REACTIONS (5)
  - MYDRIASIS [None]
  - NAUSEA [None]
  - THROAT TIGHTNESS [None]
  - VISUAL DISTURBANCE [None]
  - YAWNING [None]
